FAERS Safety Report 23625067 (Version 2)
Quarter: 2024Q1

REPORT INFORMATION
  Report Type: Spontaneous
  Country: US (occurrence: US)
  Receive Date: 20240313
  Receipt Date: 20240315
  Transmission Date: 20240410
  Serious: No
  Sender: FDA-Public Use
  Company Number: US-002147023-NVSC2024US051941

PATIENT

DRUGS (1)
  1. COSENTYX [Suspect]
     Active Substance: SECUKINUMAB
     Indication: Hidradenitis
     Dosage: 300 MG, Q2W (ONCE EVERY TWO WEEKS)
     Route: 058

REACTIONS (3)
  - Bacterial infection [Unknown]
  - Seborrhoeic dermatitis [Not Recovered/Not Resolved]
  - Psoriasis [Not Recovered/Not Resolved]
